FAERS Safety Report 7204931-9 (Version None)
Quarter: 2010Q4

REPORT INFORMATION
  Report Type: 
  Country: None (occurrence: None)
  Receive Date: 20101230
  Receipt Date: 20101223
  Transmission Date: 20110411
  Serious: Yes (Death)
  Sender: FDA-Public Use
  Company Number: AU-BAXTER-2010BH030727

PATIENT
  Sex: Female

DRUGS (3)
  1. DEXTROSE 10% [Suspect]
     Indication: MEDICAL DIET
     Route: 065
  2. TRAVASOL 10% W/ ELECTROLYTES [Suspect]
     Indication: MEDICAL DIET
     Route: 065
  3. CLINOLEIC 20% [Suspect]
     Indication: MEDICAL DIET
     Route: 065

REACTIONS (1)
  - DEATH [None]
